FAERS Safety Report 14655597 (Version 1)
Quarter: 2018Q1

REPORT INFORMATION
  Report Type: Spontaneous
  Country: GB (occurrence: GB)
  Receive Date: 20180319
  Receipt Date: 20180319
  Transmission Date: 20180509
  Serious: Yes (Hospitalization, Other)
  Sender: FDA-Public Use
  Company Number: GB-TEVA-2018-GB-869121

PATIENT
  Age: 93 Year
  Sex: Female
  Weight: 48.3 kg

DRUGS (14)
  1. RANITIDINE. [Concomitant]
     Active Substance: RANITIDINE
  2. ROPINIROLE. [Concomitant]
     Active Substance: ROPINIROLE
     Dosage: 500 MICROGRAMS EVERY MORNING AND 1MG EVERY NIGHT.
  3. CALCEOS [Concomitant]
     Active Substance: CALCIUM CARBONATE\CHOLECALCIFEROL
     Dosage: MORNING AND NIGHT. 500MG/400UNIT
  4. AMITRIPTYLINE [Concomitant]
     Active Substance: AMITRIPTYLINE
     Dosage: AT NIGHT.
  5. BISOPROLOL [Concomitant]
     Active Substance: BISOPROLOL
  6. DERMOVATE [Concomitant]
     Active Substance: CLOBETASOL
     Dosage: FOR 7 DAYS.
  7. BISOPROLOL [Concomitant]
     Active Substance: BISOPROLOL
  8. DOXAZOSIN [Concomitant]
     Active Substance: DOXAZOSIN\DOXAZOSIN MESYLATE
  9. ALLOPURINOL. [Concomitant]
     Active Substance: ALLOPURINOL
  10. ISOSORBIDE MONONITRATE. [Concomitant]
     Active Substance: ISOSORBIDE MONONITRATE
  11. NAPROXEN. [Suspect]
     Active Substance: NAPROXEN
  12. DICLOFENAC SODIUM. [Concomitant]
     Active Substance: DICLOFENAC SODIUM
  13. ACETYLSALICYLIC ACID [Concomitant]
     Active Substance: ASPIRIN
  14. GABAPENTIN. [Concomitant]
     Active Substance: GABAPENTIN

REACTIONS (2)
  - Diarrhoea [Recovered/Resolved]
  - Vomiting [Recovered/Resolved]
